FAERS Safety Report 18570729 (Version 2)
Quarter: 2020Q4

REPORT INFORMATION
  Report Type: Spontaneous
  Country: AU (occurrence: AU)
  Receive Date: 20201202
  Receipt Date: 20201207
  Transmission Date: 20210114
  Serious: Yes (Life-Threatening, Hospitalization, Other)
  Sender: FDA-Public Use
  Company Number: AU-MYLANLABS-2020M1097229

PATIENT
  Sex: Male
  Weight: 125 kg

DRUGS (6)
  1. CLOZARIL [Suspect]
     Active Substance: CLOZAPINE
     Indication: SCHIZOPHRENIA
     Dosage: UNK
     Route: 048
     Dates: start: 20031119, end: 20100929
  2. DESVENLAFAXINE. [Concomitant]
     Active Substance: DESVENLAFAXINE
     Dosage: 200 MILLIGRAM, AM, DESVENLAFAXINE  200 MG MANE.
  3. CLOZARIL [Suspect]
     Active Substance: CLOZAPINE
     Dosage: UNK
     Route: 048
     Dates: start: 2012
  4. SEROQUEL XR [Concomitant]
     Active Substance: QUETIAPINE FUMARATE
     Dosage: 800 MILLIGRAM, PM, 800 MG NOCTE
  5. OLANZAPINE. [Concomitant]
     Active Substance: OLANZAPINE
     Dosage: 450 MILLIGRAM, 405MG FORTNIGHTLY
  6. SODIUM VALPROATE [Concomitant]
     Active Substance: VALPROATE SODIUM
     Dosage: 1000 MILLIGRAM, PM

REACTIONS (4)
  - Agranulocytosis [Unknown]
  - Febrile neutropenia [Unknown]
  - Neuroleptic malignant syndrome [Unknown]
  - Thrombophlebitis [Unknown]
